FAERS Safety Report 9521208 (Version 1)
Quarter: 2013Q1

REPORT INFORMATION
  Report Type: Spontaneous
  Country: US (occurrence: None)
  Receive Date: 20130305
  Receipt Date: 20130305
  Transmission Date: 20140127
  Serious: Yes (Other)
  Sender: FDA-Public Use
  Company Number: 163-21880-12080301

PATIENT
  Age: 54 Year
  Sex: Female
  Weight: 67.13 kg

DRUGS (7)
  1. REVLIMID [Suspect]
     Indication: PLASMA CELL MYELOMA
     Route: 048
     Dates: start: 20120215
  2. BACTRIM (BACTRIM) (UNKNOWN) [Concomitant]
  3. FOLIC ACID (FOLIC ACID) (UNKNOWN) [Concomitant]
  4. LASIX (FUROSEMIDE) (UNKNOWN) [Concomitant]
  5. POTASSIUM  (POTASSIUM) (UNKNOWN) [Concomitant]
  6. PREDNISONE (PREDNISONE) (UNKNOWN) [Concomitant]
  7. VALACYCLOVIR (VALACICLOVIR HYDROCHLORIDE) (UNKNOWN) [Concomitant]

REACTIONS (1)
  - Sinusitis [None]
